FAERS Safety Report 13252470 (Version 1)
Quarter: 2017Q1

REPORT INFORMATION
  Report Type: Spontaneous
  Country: US (occurrence: US)
  Receive Date: 20170220
  Receipt Date: 20170220
  Transmission Date: 20170428
  Serious: Yes (Death, Other)
  Sender: FDA-Public Use
  Company Number: US-BAYER-2017-028297

PATIENT
  Sex: Male

DRUGS (2)
  1. BAYER ASPIRIN [Suspect]
     Active Substance: ASPIRIN
     Indication: THROMBOSIS
     Dosage: UNK, QD
     Route: 065
     Dates: start: 1989, end: 2015
  2. BAYER ASPIRIN [Suspect]
     Active Substance: ASPIRIN
     Indication: THROMBOSIS
     Dosage: UNK
     Route: 048
     Dates: start: 2015

REACTIONS (3)
  - Embolism [Fatal]
  - Off label use [Unknown]
  - Thrombosis [None]

NARRATIVE: CASE EVENT DATE: 1989
